FAERS Safety Report 8132458-9 (Version None)
Quarter: 2012Q1

REPORT INFORMATION
  Report Type: 
  Country: None (occurrence: None)
  Receive Date: 20120208
  Receipt Date: 20120127
  Transmission Date: 20120608
  Serious: Yes (Hospitalization)
  Sender: FDA-Public Use
  Company Number: 1000027853

PATIENT
  Sex: Female

DRUGS (9)
  1. LATANOPROST (LATANOPROST) (LATANOPROST) [Concomitant]
  2. SIMVASTATIN (SIMVASTATIN) (TABLETS) (SIMVASTATIN) [Concomitant]
  3. CALCIUM (CALCIUM) (TABLETS) (CALCIUM) [Concomitant]
  4. DORZOLAMIDE HYDROCHLORIDE (DORZOLAMIDE HYDROCHLORIDE) (DORZOLAMIDE HYD [Concomitant]
  5. TIMOLOL MALEATE (TIMOLOL MALEATE) (TIMOLOL MALEATE) [Concomitant]
  6. STRONTIUM RANELATE (STRONTIUM RANELATE) (TABLETS) (STRONTIUM RANELATE) [Concomitant]
  7. MEMANTINE HCL [Suspect]
     Indication: DEMENTIA
     Dosage: 5 MG (5 MG, 1 IN 1 D), ORAL
     Route: 048
     Dates: start: 20040104, end: 20111201
  8. VENLAFAXINE HYDROCHLORIDE [Suspect]
     Indication: DEPRESSION
     Dosage: 75 MG (75 MG, 1 IN 1 D), ORAL
     Route: 048
     Dates: start: 20101001, end: 20111101
  9. AMILORIDE (AMILORIDE) (TABLETS) (AMILORIDE) [Concomitant]

REACTIONS (1)
  - LIVER FUNCTION TEST ABNORMAL [None]
